FAERS Safety Report 23457413 (Version 4)
Quarter: 2024Q2

REPORT INFORMATION
  Report Type: Spontaneous
  Country: US (occurrence: US)
  Receive Date: 20240130
  Receipt Date: 20240531
  Transmission Date: 20240716
  Serious: Yes (Hospitalization, Other)
  Sender: FDA-Public Use
  Company Number: US-SA-SAC20240122001179

PATIENT
  Age: 65 Year
  Sex: Male
  Weight: 79.8 kg

DRUGS (11)
  1. DUPIXENT [Suspect]
     Active Substance: DUPILUMAB
     Dosage: 300 MG, QOW
     Route: 058
     Dates: start: 20231003
  2. LIPITOR [Interacting]
     Active Substance: ATORVASTATIN CALCIUM
     Dosage: 40 MG, QD
     Route: 048
  3. BASAGLAR KWIKPEN [Interacting]
     Active Substance: INSULIN GLARGINE
     Dosage: 16 IU, HS
     Route: 058
  4. LORATADINE [Interacting]
     Active Substance: LORATADINE
     Indication: Hypersensitivity
     Dosage: 1 DF, PRN
     Route: 048
  5. FLUTICASONE [Interacting]
     Active Substance: FLUTICASONE
     Dosage: 1 DF, QD
     Route: 055
  6. GLIPIZIDE [Interacting]
     Active Substance: GLIPIZIDE
     Dosage: 10 MG, QD
     Route: 048
  7. LATANOPROST [Interacting]
     Active Substance: LATANOPROST
     Dosage: 1 DROP BOTH EYES, HS
     Route: 031
  8. METFORMIN [Interacting]
     Active Substance: METFORMIN HYDROCHLORIDE
     Dosage: 1 DF, BID
  9. SITAGLIPTIN [Interacting]
     Active Substance: SITAGLIPTIN
     Dosage: 100 MG, QD
     Route: 048
  10. TAMSULOSIN HYDROCHLORIDE [Interacting]
     Active Substance: TAMSULOSIN HYDROCHLORIDE
     Dosage: 0.4 MG, QD
     Route: 048
  11. WARFARIN [Interacting]
     Active Substance: WARFARIN

REACTIONS (16)
  - Ischaemic cardiomyopathy [Unknown]
  - Sepsis [Unknown]
  - Hypotension [Unknown]
  - Left ventricular failure [Unknown]
  - Sinus tachycardia [Unknown]
  - Ejection fraction decreased [Unknown]
  - COVID-19 [Recovered/Resolved]
  - Cough [Recovered/Resolved]
  - Pyrexia [Recovered/Resolved]
  - Dyspnoea [Recovering/Resolving]
  - Chronic obstructive pulmonary disease [Recovering/Resolving]
  - Wheezing [Recovering/Resolving]
  - Respiratory failure [Recovering/Resolving]
  - Fibrin D dimer increased [Unknown]
  - Sneezing [Unknown]
  - Headache [Unknown]

NARRATIVE: CASE EVENT DATE: 20240101
